FAERS Safety Report 7287786-6 (Version None)
Quarter: 2011Q1

REPORT INFORMATION
  Report Type: 
  Country: None (occurrence: None)
  Receive Date: 20110211
  Receipt Date: 20110204
  Transmission Date: 20110831
  Serious: Yes (Other)
  Sender: FDA-Public Use
  Company Number: JP-GENZYME-FLUD-1000710

PATIENT
  Sex: Female

DRUGS (18)
  1. FLUDARA [Suspect]
     Dosage: 180 MG/M2, UNK
     Route: 065
  2. MELPHALAN [Suspect]
     Dosage: 70 MG/M2, UNK
     Route: 065
  3. VINCRISTINE [Concomitant]
     Indication: STEM CELL TRANSPLANT
     Dosage: 2 MG/M2, ONCE
     Route: 065
  4. FLUDARA [Suspect]
     Dosage: 125 MG/M2, UNK
     Route: 065
  5. CYCLOPHOSPHAMIDE [Suspect]
     Indication: STEM CELL TRANSPLANT
     Dosage: 50 MG/M2, UNK
     Route: 065
  6. CYCLOPHOSPHAMIDE [Suspect]
     Dosage: 750 MG/M2, ONCE
     Route: 065
  7. THYMOGLOBULIN [Suspect]
     Indication: STEM CELL TRANSPLANT
     Dosage: 20 MG, UNK
     Route: 065
  8. METHOTREXATE [Concomitant]
     Indication: PROPHYLAXIS AGAINST GRAFT VERSUS HOST DISEASE
     Dosage: 7.5 MG/M2, QD ON DAYS 1, 3 AND 6
     Route: 065
  9. VP-16 [Concomitant]
     Indication: STEM CELL TRANSPLANT
     Dosage: 150 MG/M2, ONCE
     Route: 065
  10. ADRIAMYCIN PFS [Concomitant]
     Indication: STEM CELL TRANSPLANT
     Dosage: 25 MG/M2, QD FOR 2 DAYS
     Route: 065
  11. PREDNISOLONE [Concomitant]
     Indication: STEM CELL TRANSPLANT
     Dosage: 50 MG/M2, QD FOR 5 DAYS
     Route: 065
  12. PREDNISOLONE [Concomitant]
     Dosage: 30 MG/M2, QD FOR 9 DAYS
  13. TACROLIMUS [Concomitant]
     Indication: PROPHYLAXIS AGAINST GRAFT VERSUS HOST DISEASE
     Route: 065
  14. ARA-C [Concomitant]
     Indication: STEM CELL TRANSPLANT
     Dosage: 1.5 G/M2, BID FOR 4 DAYS
  15. ELSPAR [Concomitant]
     Indication: STEM CELL TRANSPLANT
     Dosage: 6000 U/M2, QDX5
  16. FLUDARA [Suspect]
     Indication: STEM CELL TRANSPLANT
     Dosage: 120 MG/M2, UNK
     Route: 065
  17. MELPHALAN [Suspect]
     Indication: STEM CELL TRANSPLANT
     Dosage: 140 MG/M2, UNK
     Route: 065
  18. MELPHALAN [Suspect]
     Dosage: 140 MG/M2, UNK
     Route: 065

REACTIONS (2)
  - TRANSPLANT REJECTION [None]
  - ACUTE GRAFT VERSUS HOST DISEASE [None]
